FAERS Safety Report 5507820-0 (Version None)
Quarter: 2007Q4

REPORT INFORMATION
  Report Type: 
  Country: None (occurrence: None)
  Receive Date: 20071106
  Receipt Date: 20071010
  Transmission Date: 20080405
  Serious: Yes (Hospitalization, Other)
  Sender: FDA-Public Use
  Company Number: GB-BRISTOL-MYERS SQUIBB COMPANY-13968870

PATIENT
  Age: 62 Year
  Sex: Male

DRUGS (7)
  1. MORPHINE SULFATE [Suspect]
     Indication: BACK PAIN
     Route: 042
     Dates: start: 20070822, end: 20070823
  2. METOPROLOL TARTRATE [Suspect]
     Indication: CORONARY ARTERY DISEASE
     Route: 048
     Dates: start: 20070822
  3. ZESTRIL [Suspect]
     Indication: HYPERTENSION
     Route: 048
     Dates: start: 20070822
  4. LORAZEPAM [Suspect]
     Indication: ANXIETY
     Route: 048
     Dates: start: 20070822
  5. CLOPIDOGREL BISULFATE [Concomitant]
     Dates: start: 20070818, end: 20070822
  6. EPTIFIBATIDE [Concomitant]
  7. HEPARIN [Concomitant]

REACTIONS (1)
  - HYPOTENSION [None]
